FAERS Safety Report 19963079 (Version 1)
Quarter: 2021Q4

REPORT INFORMATION
  Report Type: Spontaneous
  Country: US (occurrence: US)
  Receive Date: 20211015
  Receipt Date: 20211015
  Transmission Date: 20220303
  Serious: No
  Sender: FDA-Public Use
  Company Number: None

PATIENT
  Age: 70 Year
  Sex: Male
  Weight: 87.75 kg

DRUGS (2)
  1. XTAMPZA ER [Suspect]
     Active Substance: OXYCODONE
     Indication: Osteoarthritis
     Dosage: ?          QUANTITY:1 CAPSULE(S);
     Route: 048
     Dates: start: 20210909
  2. CTAMPZA 9 MG [Concomitant]

REACTIONS (2)
  - Therapeutic product effect variable [None]
  - Product packaging quantity issue [None]

NARRATIVE: CASE EVENT DATE: 20211015
